FAERS Safety Report 8517450 (Version 3)
Quarter: 2012Q4

REPORT INFORMATION
  Report Type: 
  Country: US (occurrence: US)
  Receive Date: 20120417
  Receipt Date: 20121102
  Transmission Date: 20130627
  Serious: No
  Sender: FDA-Public Use
  Company Number: US-PFIZER INC-2012092563

PATIENT
  Age: 57 Year
  Sex: Female
  Weight: 107 kg

DRUGS (3)
  1. LYRICA [Suspect]
     Indication: FIBROMYALGIA
     Dosage: 300 mg, 2x/day
     Dates: end: 20120405
  2. METFORMIN [Concomitant]
     Indication: DIABETES
     Dosage: 500 mg, 2x/day
  3. METHADONE [Concomitant]
     Indication: BACK PAIN
     Dosage: 10 mg, 3x/day
     Dates: start: 2011

REACTIONS (5)
  - Withdrawal syndrome [Unknown]
  - Chills [Unknown]
  - Hyperhidrosis [Unknown]
  - Pain [Unknown]
  - Pain in extremity [Unknown]
